FAERS Safety Report 4505579-7 (Version None)
Quarter: 2004Q4

REPORT INFORMATION
  Report Type: 
  Country: None (occurrence: None)
  Receive Date: 20041025
  Receipt Date: 20031015
  Transmission Date: 20050328
  Serious: Yes (Other)
  Sender: FDA-Public Use
  Company Number: US-JNJFOC-20031003658

PATIENT
  Age: 77 Year
  Sex: Male
  Weight: 89.8122 kg

DRUGS (1)
  1. REMICADE [Suspect]
     Indication: RHEUMATOID ARTHRITIS
     Dosage: 1 IN 1 DAY, INTRAVENOUS
     Route: 042

REACTIONS (4)
  - HEADACHE [None]
  - NAUSEA [None]
  - RASH PRURITIC [None]
  - UPPER RESPIRATORY TRACT INFECTION [None]
